FAERS Safety Report 11896616 (Version 1)
Quarter: 2016Q1

REPORT INFORMATION
  Report Type: Spontaneous
  Country: PK (occurrence: PK)
  Receive Date: 20160107
  Receipt Date: 20160107
  Transmission Date: 20160526
  Serious: Yes (Hospitalization)
  Sender: FDA-Public Use
  Company Number: PK-FRESENIUS KABI-FK201600035

PATIENT
  Age: 52 Year
  Sex: Male

DRUGS (3)
  1. ISOFLURANE. [Concomitant]
     Active Substance: ISOFLURANE
     Indication: INDUCTION AND MAINTENANCE OF ANAESTHESIA
     Route: 042
  2. PROPOFOL (MANUFACTURER UNKNOWN) [Suspect]
     Active Substance: PROPOFOL
     Indication: INDUCTION AND MAINTENANCE OF ANAESTHESIA
     Route: 042
  3. NITROUS OXIDE. [Concomitant]
     Active Substance: NITROUS OXIDE
     Indication: INDUCTION AND MAINTENANCE OF ANAESTHESIA
     Route: 042

REACTIONS (1)
  - Acute postoperative sialadenitis [Recovered/Resolved]
